FAERS Safety Report 7865030-6 (Version None)
Quarter: 2011Q4

REPORT INFORMATION
  Report Type: 
  Country: None (occurrence: None)
  Receive Date: 20111028
  Receipt Date: 20101004
  Transmission Date: 20120403
  Serious: No
  Sender: FDA-Public Use
  Company Number: US-GLAXOSMITHKLINE-A0884777A

PATIENT
  Age: 65 Year
  Sex: Female

DRUGS (11)
  1. ADVAIR DISKUS 100/50 [Suspect]
     Indication: ASTHMA
     Dosage: 1PUFF TWICE PER DAY
     Route: 055
  2. PROPRANOLOL [Concomitant]
  3. RANITIDINE [Concomitant]
  4. CALCIUM CARBONATE [Concomitant]
  5. PROZAC [Concomitant]
  6. MIDRIN [Concomitant]
  7. TOPIRAMATE [Concomitant]
  8. SIMVASTATIN [Concomitant]
  9. FEXOFENADINE [Concomitant]
  10. MUCINEX DM [Concomitant]
  11. GINKO [Concomitant]

REACTIONS (5)
  - PRODUCT QUALITY ISSUE [None]
  - AGEUSIA [None]
  - OROPHARYNGEAL BLISTERING [None]
  - ORAL DISCOMFORT [None]
  - GLOSSODYNIA [None]
